FAERS Safety Report 6121164-8 (Version None)
Quarter: 2009Q1

REPORT INFORMATION
  Report Type: 
  Country: None (occurrence: None)
  Receive Date: 20090317
  Receipt Date: 20090309
  Transmission Date: 20090719
  Serious: Yes (Congenital Anomaly)
  Sender: FDA-Public Use
  Company Number: B0564110A

PATIENT

DRUGS (2)
  1. LAMICTAL [Suspect]
  2. RIVOTRIL [Suspect]
     Dosage: 5MG TWICE PER DAY

REACTIONS (2)
  - CONGENITAL MUSCULOSKELETAL ANOMALY [None]
  - PIERRE ROBIN SYNDROME [None]
